FAERS Safety Report 14996303 (Version 1)
Quarter: 2018Q2

REPORT INFORMATION
  Report Type: Report from Study
  Country: ES (occurrence: ES)
  Receive Date: 20180611
  Receipt Date: 20180611
  Transmission Date: 20180711
  Serious: Yes (Hospitalization, Other)
  Sender: FDA-Public Use
  Company Number: ES-JNJFOC-20180603169

PATIENT
  Age: 62 Year
  Sex: Male
  Weight: 66 kg

DRUGS (8)
  1. FOLI DOCE [Concomitant]
     Route: 065
  2. IMBRUVICA [Suspect]
     Active Substance: IBRUTINIB
     Indication: MANTLE CELL LYMPHOMA
     Route: 048
     Dates: start: 20151222, end: 20160216
  3. OMEPRAZOLE. [Concomitant]
     Active Substance: OMEPRAZOLE
     Route: 065
  4. BECOZYME C FORTE [Concomitant]
     Route: 065
  5. IMBRUVICA [Suspect]
     Active Substance: IBRUTINIB
     Indication: MANTLE CELL LYMPHOMA
     Route: 048
  6. KILOR [Concomitant]
     Route: 065
  7. IMBRUVICA [Suspect]
     Active Substance: IBRUTINIB
     Indication: MANTLE CELL LYMPHOMA
     Route: 048
  8. IMBRUVICA [Suspect]
     Active Substance: IBRUTINIB
     Indication: MANTLE CELL LYMPHOMA
     Route: 048
     Dates: start: 20160216

REACTIONS (11)
  - Leukoplakia oral [Unknown]
  - Lymphadenopathy [Unknown]
  - Inguinal hernia [Unknown]
  - Respiratory tract infection [Unknown]
  - Gastric polyps [Unknown]
  - Influenza [Unknown]
  - Haemophilus infection [Unknown]
  - Decreased appetite [Unknown]
  - Haemorrhagic erosive gastritis [Unknown]
  - Asthenia [Unknown]
  - Oral candidiasis [Not Recovered/Not Resolved]

NARRATIVE: CASE EVENT DATE: 201601
